FAERS Safety Report 20407039 (Version 1)
Quarter: 2022Q1

REPORT INFORMATION
  Report Type: Spontaneous
  Country: US (occurrence: US)
  Receive Date: 20220131
  Receipt Date: 20220131
  Transmission Date: 20220423
  Serious: Yes (Other)
  Sender: FDA-Public Use
  Company Number: US-009507513-2201USA007755

PATIENT
  Age: 49 Year
  Sex: Female

DRUGS (1)
  1. TEMODAR [Suspect]
     Active Substance: TEMOZOLOMIDE
     Indication: Gliosarcoma
     Dosage: UNK
     Route: 048

REACTIONS (2)
  - Thrombocytopenia [Unknown]
  - Leukopenia [Unknown]
